FAERS Safety Report 9544298 (Version 1)
Quarter: 2013Q3

REPORT INFORMATION
  Report Type: Spontaneous
  Country: FR (occurrence: FR)
  Receive Date: 20130923
  Receipt Date: 20130923
  Transmission Date: 20140515
  Serious: Yes (Hospitalization)
  Sender: FDA-Public Use
  Company Number: FR-B.I. PHARMACEUTICALS,INC./RIDGEFIELD-2013-FF-02334FF

PATIENT
  Age: 84 Year
  Sex: Female

DRUGS (5)
  1. PRADAXA [Suspect]
     Indication: ATRIAL FIBRILLATION
     Dosage: 220 MG
     Route: 048
     Dates: start: 201303, end: 20130316
  2. CORDARONE [Concomitant]
     Indication: ATRIAL FIBRILLATION
     Dosage: 200 MG
     Route: 048
     Dates: start: 201303
  3. KENZEN [Concomitant]
     Route: 048
     Dates: start: 201303
  4. ALDACTONE [Concomitant]
     Dosage: 25 MG
     Route: 048
  5. OXYBUTYNINE [Concomitant]
     Dosage: 5 MG
     Route: 048

REACTIONS (2)
  - Anaemia [Recovered/Resolved]
  - Abnormal clotting factor [Not Recovered/Not Resolved]
